FAERS Safety Report 7203354-6 (Version None)
Quarter: 2010Q4

REPORT INFORMATION
  Report Type: 
  Country: None (occurrence: None)
  Receive Date: 20101215
  Receipt Date: 20101206
  Transmission Date: 20110411
  Serious: Yes (Hospitalization)
  Sender: FDA-Public Use
  Company Number: 2010SP059141

PATIENT
  Age: 0 Year
  Sex: Female
  Weight: 2.34 kg

DRUGS (1)
  1. ESLAX (ROCURONIUM BROMIDE /01245702/) [Suspect]
     Indication: DRUG EXPOSURE DURING PREGNANCY
     Dosage: TRPL
     Route: 064

REACTIONS (5)
  - APGAR SCORE LOW [None]
  - HYPOPNOEA [None]
  - INFANTILE APNOEIC ATTACK [None]
  - MATERNAL DRUGS AFFECTING FOETUS [None]
  - RHABDOMYOLYSIS [None]
